FAERS Safety Report 9225449 (Version 2)
Quarter: 2013Q2

REPORT INFORMATION
  Report Type: Spontaneous
  Country: US (occurrence: US)
  Receive Date: 20130411
  Receipt Date: 20130516
  Transmission Date: 20140414
  Serious: Yes (Hospitalization, Other)
  Sender: FDA-Public Use
  Company Number: US-ROCHE-1210507

PATIENT
  Age: 53 Year
  Sex: Male

DRUGS (2)
  1. ACTILYSE [Suspect]
     Indication: ILIAC ARTERY OCCLUSION
     Dosage: 10 MG/50 ML
     Route: 050
  2. HEPARIN [Concomitant]
     Route: 065

REACTIONS (9)
  - Pancreatitis acute [Unknown]
  - Haemolysis [Unknown]
  - Renal failure [Unknown]
  - Abdominal pain [Unknown]
  - Hypotension [Unknown]
  - Peripheral ischaemia [Unknown]
  - Iliac artery occlusion [Recovered/Resolved]
  - Peripheral artery thrombosis [Recovered/Resolved]
  - Pancreatic pseudocyst [Unknown]
